FAERS Safety Report 8794091 (Version 1)
Quarter: 2012Q4

REPORT INFORMATION
  Report Type: 
  Country: BR (occurrence: BR)
  Receive Date: 20120917
  Receipt Date: 20120917
  Transmission Date: 20130627
  Serious: Yes (Other)
  Sender: FDA-Public Use
  Company Number: PHHY2012BR080066

PATIENT
  Sex: Male
  Weight: 45 kg

DRUGS (2)
  1. RITALINA [Suspect]
     Indication: PSYCHOMOTOR HYPERACTIVITY
     Dosage: 1 DF, QD
     Route: 048
  2. RITALINA [Suspect]
     Dosage: 0.5 mg, QD
     Route: 048

REACTIONS (5)
  - Keratoconus [Not Recovered/Not Resolved]
  - Strabismus [Not Recovered/Not Resolved]
  - Headache [Not Recovered/Not Resolved]
  - Retching [Not Recovered/Not Resolved]
  - Psychomotor hyperactivity [Not Recovered/Not Resolved]
